FAERS Safety Report 5409377-1 (Version None)
Quarter: 2007Q3

REPORT INFORMATION
  Report Type: 
  Country: None (occurrence: None)
  Receive Date: 20070807
  Receipt Date: 20070807
  Transmission Date: 20080115
  Serious: Yes (Other)
  Sender: FDA-Public Use
  Company Number: None

PATIENT
  Age: 77 Year
  Sex: Female

DRUGS (1)
  1. NITROQUICK SI TAB 25'S 0.4MG; 1/150GR ETHEX [Suspect]
     Indication: ANGINA PECTORIS
     Dosage: SUBLINGUALLY AS NEEDED
     Route: 060
     Dates: start: 20070512, end: 20070513

REACTIONS (2)
  - DRUG INEFFECTIVE [None]
  - PHARMACEUTICAL PRODUCT COMPLAINT [None]
